FAERS Safety Report 19654220 (Version 2)
Quarter: 2021Q3

REPORT INFORMATION
  Report Type: Spontaneous
  Country: JP (occurrence: JP)
  Receive Date: 20210803
  Receipt Date: 20210812
  Transmission Date: 20211014
  Serious: Yes (Other)
  Sender: FDA-Public Use
  Company Number: JP-009507513-2107JPN002498J

PATIENT
  Age: 84 Year
  Sex: Female

DRUGS (1)
  1. KEYTRUDA [Suspect]
     Active Substance: PEMBROLIZUMAB
     Indication: LUNG ADENOCARCINOMA RECURRENT
     Route: 041

REACTIONS (4)
  - Neuritis [Unknown]
  - Optic nerve disorder [Recovering/Resolving]
  - IIIrd nerve paralysis [Recovering/Resolving]
  - Trigeminal palsy [Recovering/Resolving]
